FAERS Safety Report 25322225 (Version 1)
Quarter: 2025Q2

REPORT INFORMATION
  Report Type: Spontaneous
  Country: US (occurrence: US)
  Receive Date: 20250516
  Receipt Date: 20250516
  Transmission Date: 20250716
  Serious: Yes (Hospitalization, Other)
  Sender: AMGEN
  Company Number: US-AMGEN-USASP2025092755

PATIENT
  Age: 77 Year
  Sex: Female
  Weight: 41.64 kg

DRUGS (13)
  1. PREDNISONE [Suspect]
     Active Substance: PREDNISONE
     Indication: Product used for unknown indication
     Route: 065
  2. FISH OIL [Concomitant]
     Active Substance: FISH OIL
     Dosage: UNK UNK, QD (1 CAPSULE)
     Route: 048
  3. CALCIUM\MAGNESIUM [Concomitant]
     Active Substance: CALCIUM\MAGNESIUM
     Dosage: 270 MILLIGRAM, QD (180 MG-90 MG)
     Route: 048
  4. SENOKOT-S [Concomitant]
     Active Substance: DOCUSATE SODIUM\SENNOSIDES
     Dosage: 58.6 MILLIGRAM, BID (50-8.6 MG)
     Route: 048
  5. YUPELRI [Concomitant]
     Active Substance: REVEFENACIN
     Dosage: 1 UNIT, QD (175MCG/3ML)
  6. ALBUTEROL SULFATE [Concomitant]
     Active Substance: ALBUTEROL SULFATE
     Dosage: UNK UNK, BID (0.09 MG/1 ACTUATION) (1 PUFF)
     Route: 065
  7. LOVASTATIN [Concomitant]
     Active Substance: LOVASTATIN
     Dosage: 10 MILLIGRAM, QD
     Route: 048
  8. ALBUTEROL SULFATE [Concomitant]
     Active Substance: ALBUTEROL SULFATE
     Dosage: 3 MILLILITER, TID
  9. BUDESONIDE AND FORMOTEROL FUMARATE DIHYDRATE [Concomitant]
     Active Substance: BUDESONIDE\FORMOTEROL FUMARATE
     Dosage: UNK UNK, BID (2 PUFF) (160MCG-4.5MCG)
  10. GABAPENTIN [Concomitant]
     Active Substance: GABAPENTIN
     Dosage: 300 MILLIGRAM, TID
     Route: 048
  11. HYDROCODONE POLISTIREX AND CHLORPHENIRAMINE POLISTIREX [Concomitant]
     Active Substance: CHLORPHENIRAMINE MALEATE\HYDROCODONE BITARTRATE
     Dosage: 5 MILLILITER, Q12H
  12. VITAMIN D3 [Concomitant]
     Active Substance: CHOLECALCIFEROL
     Indication: Vitamin D deficiency
     Dosage: 2000 INTERNATIONAL UNIT, QD
     Route: 048
  13. HYDROCODONE BITARTRATE AND ACETAMINOPHEN [Concomitant]
     Active Substance: ACETAMINOPHEN\HYDROCODONE BITARTRATE
     Indication: Pain
     Route: 065

REACTIONS (8)
  - Compression fracture [Not Recovered/Not Resolved]
  - Pulmonary fibrosis [Not Recovered/Not Resolved]
  - Pathological fracture [Unknown]
  - Back pain [Not Recovered/Not Resolved]
  - Iron deficiency anaemia [Not Recovered/Not Resolved]
  - Asthma [Not Recovered/Not Resolved]
  - Constipation [Not Recovered/Not Resolved]
  - Oedema peripheral [Unknown]
